FAERS Safety Report 5076075-6 (Version None)
Quarter: 2006Q3

REPORT INFORMATION
  Report Type: 
  Country: None (occurrence: None)
  Receive Date: 20060807
  Receipt Date: 20060724
  Transmission Date: 20061208
  Serious: Yes (Hospitalization, Other)
  Sender: FDA-Public Use
  Company Number: 2006091745

PATIENT
  Age: 48 Year
  Sex: Female
  Weight: 90.7194 kg

DRUGS (1)
  1. ARTHROTEC [Suspect]
     Indication: OSTEOARTHRITIS
     Dosage: 75 MG (75 MG, AS NECESSARY)
     Dates: start: 20051101, end: 20060705

REACTIONS (3)
  - ANAPHYLACTIC SHOCK [None]
  - BURNING SENSATION [None]
  - SWELLING [None]
